FAERS Safety Report 21925144 (Version 1)
Quarter: 2023Q1

REPORT INFORMATION
  Report Type: Spontaneous
  Country: DE (occurrence: DE)
  Receive Date: 20230130
  Receipt Date: 20230130
  Transmission Date: 20230418
  Serious: Yes (Other)
  Sender: FDA-Public Use
  Company Number: DE-EMBRYOTOX-202211008

PATIENT
  Age: 39 Year
  Sex: Female
  Weight: 56 kg

DRUGS (1)
  1. FLUOXETINE [Suspect]
     Active Substance: FLUOXETINE HYDROCHLORIDE
     Indication: Obsessive-compulsive disorder
     Dosage: 20 MG, QD (0 - 14.2. GESTATIONAL WEEK)
     Route: 048
     Dates: start: 20220827, end: 20221207

REACTIONS (2)
  - Abortion missed [Recovered/Resolved]
  - Maternal exposure via partner during pregnancy [Unknown]
